FAERS Safety Report 18237868 (Version 1)
Quarter: 2020Q3

REPORT INFORMATION
  Report Type: Spontaneous
  Country: JP (occurrence: JP)
  Receive Date: 20200907
  Receipt Date: 20200907
  Transmission Date: 20201103
  Serious: Yes (Other)
  Sender: FDA-Public Use
  Company Number: JP-SUN PHARMACEUTICAL INDUSTRIES LTD-2020RR-260351

PATIENT
  Age: 64 Year
  Sex: Male

DRUGS (4)
  1. BEVACIZUMAB. [Suspect]
     Active Substance: BEVACIZUMAB
     Indication: MIXED ADENONEUROENDOCRINE CARCINOMA
     Dosage: UNK
     Route: 065
  2. FLUOROURACIL. [Suspect]
     Active Substance: FLUOROURACIL
     Indication: MIXED ADENONEUROENDOCRINE CARCINOMA
     Dosage: UNK
     Route: 065
  3. OXALIPLATIN. [Suspect]
     Active Substance: OXALIPLATIN
     Indication: MIXED ADENONEUROENDOCRINE CARCINOMA
     Dosage: UNK
     Route: 065
  4. CALCIUM FOLINAT [Suspect]
     Active Substance: LEUCOVORIN CALCIUM
     Indication: MIXED ADENONEUROENDOCRINE CARCINOMA
     Dosage: UNK
     Route: 065

REACTIONS (2)
  - General physical health deterioration [Not Recovered/Not Resolved]
  - Condition aggravated [Unknown]
